FAERS Safety Report 6936754-X (Version None)
Quarter: 2010Q3

REPORT INFORMATION
  Report Type: 
  Country: None (occurrence: None)
  Receive Date: 20100818
  Receipt Date: 20100809
  Transmission Date: 20110219
  Serious: Yes (Hospitalization)
  Sender: FDA-Public Use
  Company Number: US-1182319

PATIENT
  Sex: Female
  Weight: 13.1543 kg

DRUGS (2)
  1. CIPRODEX [Suspect]
     Indication: EYE INFECTION
     Dosage: (2 GTT TID OD OPHTHALMIC)
     Route: 047
     Dates: start: 20080522, end: 20080528
  2. CIPROFLOXACIN [Suspect]

REACTIONS (5)
  - BRAIN ABSCESS [None]
  - DRUG DISPENSING ERROR [None]
  - EYE DISCHARGE [None]
  - PERIORBITAL CELLULITIS [None]
  - WRONG DRUG ADMINISTERED [None]
